FAERS Safety Report 9627077 (Version 2)
Quarter: 2013Q4

REPORT INFORMATION
  Report Type: Spontaneous
  Country: US (occurrence: None)
  Receive Date: 20131011
  Receipt Date: 20131018
  Transmission Date: 20140711
  Serious: Yes (Hospitalization)
  Sender: FDA-Public Use
  Company Number: 2013-1603

PATIENT
  Age: 64 Year
  Sex: Male

DRUGS (3)
  1. KYPROLIS [Suspect]
     Indication: PLASMA CELL MYELOMA
     Dosage: (2 IN 1 WK) INTRAVENOUS
     Route: 042
     Dates: start: 20130509
  2. ALLOPURINOL (ALLOPURINOL) [Concomitant]
  3. UNKNOWN BLOOD PRESSURE MEDICATION (NULL) (NULL) [Concomitant]

REACTIONS (2)
  - Localised infection [None]
  - Gout [None]
